FAERS Safety Report 7166895-6 (Version None)
Quarter: 2010Q4

REPORT INFORMATION
  Report Type: 
  Country: None (occurrence: None)
  Receive Date: 20101213
  Receipt Date: 20101213
  Transmission Date: 20110411
  Serious: Yes (Other)
  Sender: FDA-Public Use
  Company Number: None

PATIENT
  Age: 53 Year
  Sex: Female
  Weight: 74.8435 kg

DRUGS (2)
  1. LOVASTATIN [Suspect]
     Indication: BLOOD CHOLESTEROL INCREASED
     Dosage: 1 X DAY PO
     Route: 048
  2. SIMVASTATIN [Suspect]
     Indication: BLOOD CHOLESTEROL INCREASED
     Dosage: 10 MG 1 X DAY PO

REACTIONS (5)
  - BLOOD TEST ABNORMAL [None]
  - DRUG EFFECT DECREASED [None]
  - MUSCLE INJURY [None]
  - MUSCLE SPASMS [None]
  - PAIN IN EXTREMITY [None]
